FAERS Safety Report 9063435 (Version 1)
Quarter: 2013Q1

REPORT INFORMATION
  Report Type: Report from Study
  Country: US (occurrence: US)
  Receive Date: 20130131
  Receipt Date: 20130131
  Transmission Date: 20140127
  Serious: No
  Sender: FDA-Public Use
  Company Number: US-ABBOTT-12P-163-1014078-00

PATIENT
  Age: 55 Year
  Sex: Female

DRUGS (10)
  1. HUMIRA [Suspect]
     Indication: CROHN^S DISEASE
     Dosage: LOADING DOSE
     Dates: start: 20121121, end: 20121121
  2. HUMIRA [Suspect]
     Dates: start: 20121205, end: 20121205
  3. PENTASA [Concomitant]
     Indication: CROHN^S DISEASE
  4. IMURAN [Concomitant]
     Indication: PRODUCT USED FOR UNKNOWN INDICATION
  5. PRILOSEC [Concomitant]
     Indication: GASTROINTESTINAL DISORDER
  6. PRILOSEC [Concomitant]
     Indication: DRUG ABUSE
  7. LOTREL [Concomitant]
     Indication: BLOOD PRESSURE
     Dosage: 2.5-10 MG DAILY
  8. VALTREX [Concomitant]
     Indication: HERPES ZOSTER
     Dates: start: 20121110
  9. MULTIVITAMIN [Concomitant]
     Indication: VITAMIN SUPPLEMENTATION
     Dosage: DAILY
  10. VITAMIN D [Concomitant]
     Indication: VITAMIN SUPPLEMENTATION
     Dosage: DAILY

REACTIONS (3)
  - Injection site pain [Recovered/Resolved]
  - Muscle spasms [Unknown]
  - Flank pain [Not Recovered/Not Resolved]
